FAERS Safety Report 7057336-8 (Version None)
Quarter: 2010Q4

REPORT INFORMATION
  Report Type: 
  Country: None (occurrence: None)
  Receive Date: 20101021
  Receipt Date: 20101021
  Transmission Date: 20110411
  Serious: Yes (Hospitalization)
  Sender: FDA-Public Use
  Company Number: None

PATIENT
  Age: 83 Year
  Sex: Male
  Weight: 94 kg

DRUGS (2)
  1. TRIMETHOPRIM + SULFAMETHOXAZOLE [Suspect]
     Indication: INFECTION
     Dosage: 1 TAB BID PO
     Route: 048
     Dates: start: 20100527, end: 20100606
  2. LISINOPRIL [Suspect]
     Indication: HYPERTENSION
     Dosage: 40 MG BID PO
     Route: 048
     Dates: end: 20100607

REACTIONS (6)
  - ASTHENIA [None]
  - DECREASED APPETITE [None]
  - HYPERKALAEMIA [None]
  - LOCALISED INFECTION [None]
  - RENAL FAILURE ACUTE [None]
  - VOMITING [None]
